FAERS Safety Report 5256571-9 (Version None)
Quarter: 2007Q1

REPORT INFORMATION
  Report Type: 
  Country: None (occurrence: None)
  Receive Date: 20070301
  Receipt Date: 20070216
  Transmission Date: 20070707
  Serious: Yes (Other)
  Sender: FDA-Public Use
  Company Number: 2007SP001332

PATIENT
  Age: 57 Year
  Sex: Male

DRUGS (16)
  1. NOXAFIL [Suspect]
     Indication: SINUSITIS FUNGAL
     Dosage: 400 MG; BID; PO
     Route: 048
     Dates: start: 20070104
  2. SIMVASTATIN [Suspect]
     Indication: SINUSITIS FUNGAL
     Dosage: 10 MG; QD
  3. AMBISOME [Concomitant]
  4. DILAUDID [Concomitant]
  5. BACTRIM [Concomitant]
  6. SODIUM BICARBONATE [Concomitant]
  7. LASIX [Concomitant]
  8. CLONIDINE [Concomitant]
  9. MYFORTIC [Concomitant]
  10. NEXIUM [Concomitant]
  11. KEPPRA [Concomitant]
  12. CARDIZEM [Concomitant]
  13. PROGRAF [Concomitant]
  14. LOPRESSOR [Concomitant]
  15. FOLIC ACID [Concomitant]
  16. COUMADIN [Concomitant]

REACTIONS (2)
  - RENAL FAILURE ACUTE [None]
  - RHABDOMYOLYSIS [None]
